FAERS Safety Report 4791245-X (Version None)
Quarter: 2005Q4

REPORT INFORMATION
  Report Type: 
  Country: None (occurrence: None)
  Receive Date: 20051007
  Receipt Date: 20050928
  Transmission Date: 20060501
  Serious: Yes (Hospitalization)
  Sender: FDA-Public Use
  Company Number: FR-ABBOTT-05P-056-0312363-00

PATIENT
  Age: 80 Year
  Sex: Male

DRUGS (2)
  1. DEPAKENE [Suspect]
     Indication: SUBDURAL HAEMATOMA
     Route: 048
     Dates: start: 20050515, end: 20050712
  2. NAFTIDROFURYL OXALATE [Suspect]
     Indication: DRUG USE FOR UNKNOWN INDICATION
     Route: 048
     Dates: start: 20050515, end: 20050712

REACTIONS (3)
  - CHOLESTASIS [None]
  - HEPATITIS CHOLESTATIC [None]
  - JAUNDICE [None]
